FAERS Safety Report 6598058-7 (Version None)
Quarter: 2010Q1

REPORT INFORMATION
  Report Type: 
  Country: None (occurrence: None)
  Receive Date: 20100216
  Receipt Date: 20100203
  Transmission Date: 20100710
  Serious: Yes (Death, Hospitalization)
  Sender: FDA-Public Use
  Company Number: 94902

PATIENT
  Age: 39 Year
  Sex: Male

DRUGS (1)
  1. AMIKACIN SULFATE [Suspect]
     Indication: URINARY TRACT INFECTION
     Dosage: 750MG, IV ONCE A DAY;
     Route: 042

REACTIONS (13)
  - ALTERED STATE OF CONSCIOUSNESS [None]
  - BARTTER'S SYNDROME [None]
  - CENTRAL VENOUS PRESSURE DECREASED [None]
  - DEHYDRATION [None]
  - GRAND MAL CONVULSION [None]
  - HEART RATE INCREASED [None]
  - HYPOCALCAEMIA [None]
  - HYPOPHOSPHATAEMIA [None]
  - METABOLIC ENCEPHALOPATHY [None]
  - PNEUMONIA [None]
  - POLYURIA [None]
  - PSEUDOMONAS INFECTION [None]
  - SOMNOLENCE [None]
